FAERS Safety Report 8470804-7 (Version None)
Quarter: 2012Q2

REPORT INFORMATION
  Report Type: 
  Country: None (occurrence: None)
  Receive Date: 20120620
  Receipt Date: 20120611
  Transmission Date: 20120825
  Serious: Yes (Hospitalization)
  Sender: FDA-Public Use
  Company Number: AUR-APL-2012-02592

PATIENT
  Age: 47 Year
  Sex: Male
  Weight: 92 kg

DRUGS (14)
  1. TRYPSIN [Suspect]
     Indication: ACUTE CORONARY SYNDROME
     Dosage: (1 IN 1 D), ORAL
     Route: 048
     Dates: start: 20091012
  2. RANITIDINE HYDROCHLORIDE [Concomitant]
  3. NITROGLYCERIN [Concomitant]
  4. ISOSORBIDE MONONITRATE [Concomitant]
  5. RAMIPRIL [Concomitant]
  6. ROSUVASTATIN [Concomitant]
  7. DILTIAZEM [Suspect]
     Indication: PRODUCT USED FOR UNKNOWN INDICATION
  8. ASPIRIN [Concomitant]
  9. TRYPSIN [Suspect]
  10. CLOPIDEGREL [Concomitant]
  11. BISOPROLOL FUMARATE [Suspect]
     Indication: PRODUCT USED FOR UNKNOWN INDICATION
     Dosage: (5 MG)
     Dates: end: 20110616
  12. AMLODIPINE [Concomitant]
  13. EZETIMIBE [Concomitant]
  14. NICORANDIL (NICORANDIL) [Concomitant]

REACTIONS (2)
  - ANGINA PECTORIS [None]
  - MALAISE [None]
